FAERS Safety Report 6495747-X (Version None)
Quarter: 2009Q4

REPORT INFORMATION
  Report Type: 
  Country: None (occurrence: None)
  Receive Date: 20091214
  Receipt Date: 20090810
  Transmission Date: 20100525
  Serious: No
  Sender: FDA-Public Use
  Company Number: US-BRISTOL-MYERS SQUIBB COMPANY-14732622

PATIENT
  Age: 70 Year
  Sex: Female
  Weight: 51 kg

DRUGS (7)
  1. ABILIFY [Suspect]
     Indication: BIPOLAR DISORDER
     Dosage: STR: 250MG. STARTED WITH 5MG. INCRSD TO 7.5MG, THEN TO 10MG. REDUCED TO 2.5MG AND INC TO 5MG
     Dates: end: 20081201
  2. BUPROPION HCL [Concomitant]
  3. GLIPIZIDE [Concomitant]
  4. SIMVASTATIN [Concomitant]
  5. ESTROGEN [Concomitant]
  6. PRIMATENE MIST [Concomitant]
     Dosage: PRIMATENE MIST
  7. CENTRUM SILVER [Concomitant]

REACTIONS (2)
  - MUSCLE SPASMS [None]
  - SUICIDAL IDEATION [None]
